FAERS Safety Report 13936951 (Version 1)
Quarter: 2017Q3

REPORT INFORMATION
  Report Type: Spontaneous
  Country: US (occurrence: US)
  Receive Date: 20170905
  Receipt Date: 20170905
  Transmission Date: 20171127
  Serious: Yes (Life-Threatening)
  Sender: FDA-Public Use
  Company Number: US-PERRIGO-17US026239

PATIENT
  Age: 19 Year
  Sex: Male

DRUGS (1)
  1. LOPERAMIDE HYDROCHLORIDE. [Suspect]
     Active Substance: LOPERAMIDE HYDROCHLORIDE
     Indication: DRUG USE DISORDER
     Dosage: UNKNOWN, UNKNOWN
     Route: 048

REACTIONS (8)
  - Acidosis [Recovered/Resolved]
  - Rhabdomyolysis [Recovered/Resolved]
  - Coagulopathy [Recovered/Resolved]
  - Drug abuse [Unknown]
  - Tachycardia [Recovered/Resolved]
  - Hypotension [Recovered/Resolved]
  - Cytopenia [Recovered/Resolved]
  - Coma [Recovered/Resolved]
